FAERS Safety Report 9228223 (Version 2)
Quarter: 2013Q2

REPORT INFORMATION
  Report Type: Report from Study
  Country: PL (occurrence: PL)
  Receive Date: 20130412
  Receipt Date: 20130620
  Transmission Date: 20140414
  Serious: Yes (Hospitalization)
  Sender: FDA-Public Use
  Company Number: PL-ROCHE-1208915

PATIENT
  Sex: 0

DRUGS (4)
  1. ALTEPLASE [Suspect]
     Indication: ACUTE MYOCARDIAL INFARCTION
     Dosage: 15 MG BOLUS FOLLOWED BY AN INFUSION OF 35 MG/H
     Route: 040
  2. ABCIXIMAB [Suspect]
     Indication: ACUTE MYOCARDIAL INFARCTION
     Dosage: BOLUS OF 0.25 MG/KG, FOLLOWED BY AN INFUSION OF 0.125 MCG/KG/MIN. (MAX. 10)
     Route: 040
  3. ASPIRIN [Suspect]
     Indication: ACUTE MYOCARDIAL INFARCTION
     Dosage: 100 TO 350 MG
     Route: 065
  4. HEPARIN [Suspect]
     Indication: ACUTE MYOCARDIAL INFARCTION
     Dosage: BOLUS OF 60 U/KG (MAX. 5000)
     Route: 040

REACTIONS (1)
  - Cerebrovascular accident [Unknown]
